FAERS Safety Report 7312964-7 (Version None)
Quarter: 2011Q1

REPORT INFORMATION
  Report Type: 
  Country: None (occurrence: None)
  Receive Date: 20110224
  Receipt Date: 20110216
  Transmission Date: 20110831
  Serious: Yes (Hospitalization, Other)
  Sender: FDA-Public Use
  Company Number: BR-ELI_LILLY_AND_COMPANY-BR201011006689

PATIENT
  Sex: Female
  Weight: 79 kg

DRUGS (11)
  1. CRESTOR [Concomitant]
     Dosage: UNK, UNKNOWN
     Route: 065
  2. HUMALOG MIX 75/25 [Suspect]
     Indication: TYPE 2 DIABETES MELLITUS
     Dosage: 48 IU, EACH MORNING
     Route: 058
  3. HUMALOG MIX 75/25 [Suspect]
     Dosage: 40 IU, EACH EVENING
     Route: 058
  4. PURAN T4 [Concomitant]
     Indication: THYROID DISORDER
     Dosage: UNK, UNKNOWN
     Route: 065
  5. SOMALGIN [Concomitant]
     Dosage: 200 MG, UNKNOWN
     Route: 065
  6. SUSTRATE [Concomitant]
     Dosage: UNK, UNKNOWN
     Route: 065
  7. CLOPIDOGREL [Concomitant]
     Dosage: UNK, UNKNOWN
     Route: 065
  8. HUMALOG MIX 75/25 [Suspect]
     Dosage: 84 IU, DAILY (1/D)
     Route: 058
     Dates: start: 20101101
  9. METOPROLOL TARTRATE [Concomitant]
     Dosage: UNK, UNKNOWN
     Route: 065
  10. MICARDIS [Concomitant]
     Dosage: 40 MG, UNKNOWN
     Route: 065
  11. GLIMEPIRIDE W/METFORMIN [Concomitant]
     Dosage: UNK, UNKNOWN
     Route: 065

REACTIONS (6)
  - BLOOD GLUCOSE INCREASED [None]
  - FATIGUE [None]
  - BLOOD GLUCOSE ABNORMAL [None]
  - MYOCARDIAL INFARCTION [None]
  - VASCULAR OCCLUSION [None]
  - DRUG INEFFECTIVE [None]
